FAERS Safety Report 6071293-2 (Version None)
Quarter: 2009Q1

REPORT INFORMATION
  Report Type: 
  Country: None (occurrence: None)
  Receive Date: 20090205
  Receipt Date: 20090127
  Transmission Date: 20090719
  Serious: Yes (Hospitalization)
  Sender: FDA-Public Use
  Company Number: 2009-00303

PATIENT
  Age: 68 Year
  Sex: Male
  Weight: 56.7 kg

DRUGS (10)
  1. VELCADE [Suspect]
     Indication: ADENOID CYSTIC CARCINOMA
     Dosage: 1.3 MG/M2, IV BOLUS
     Route: 040
     Dates: start: 20081103, end: 20081215
  2. CISPLATIN [Suspect]
     Indication: ADENOID CYSTIC CARCINOMA
     Dosage: 30 MG/M2, INTRAVENOUS
     Route: 042
     Dates: start: 20081103, end: 20081215
  3. MAGENSIUM OXIDE (MAGNESIUM OXIDE) [Suspect]
     Indication: DRUG USE FOR UNKNOWN INDICATION
  4. AMLODIPINE [Concomitant]
  5. CIPRO [Concomitant]
  6. LORAZEPAM [Concomitant]
  7. METRONIDAZOLE [Concomitant]
  8. ZOFRAN [Concomitant]
  9. PERCOCET [Concomitant]
  10. COMPAZINE [Concomitant]

REACTIONS (13)
  - ASTHENIA [None]
  - COLITIS [None]
  - CONSTIPATION [None]
  - DEHYDRATION [None]
  - DEPRESSION [None]
  - DISTURBANCE IN ATTENTION [None]
  - DIZZINESS [None]
  - DYSURIA [None]
  - OROPHARYNGEAL PAIN [None]
  - PAIN IN EXTREMITY [None]
  - REFUSAL OF TREATMENT BY PATIENT [None]
  - SMALL INTESTINAL OBSTRUCTION [None]
  - WEIGHT DECREASED [None]
